FAERS Safety Report 22245267 (Version 2)
Quarter: 2023Q4

REPORT INFORMATION
  Report Type: Other
  Country: US (occurrence: None)
  Receive Date: 20230424
  Receipt Date: 20231108
  Transmission Date: 20240110
  Serious: No
  Sender: FDA-Public Use
  Company Number: US-ROCHE-2927616

PATIENT
  Age: 62 Year
  Sex: Male

DRUGS (32)
  1. XOLAIR [Suspect]
     Active Substance: OMALIZUMAB
     Indication: Asthma
     Dosage: 75MG/0.5ML, 3 REFILLS
     Route: 058
  2. XOLAIR [Suspect]
     Active Substance: OMALIZUMAB
  3. XOLAIR [Suspect]
     Active Substance: OMALIZUMAB
     Indication: Rhinitis allergic
     Route: 030
  4. XOLAIR [Suspect]
     Active Substance: OMALIZUMAB
  5. ACETAMINOPHEN [Concomitant]
     Active Substance: ACETAMINOPHEN
  6. ACETYLCYSTEINE [Concomitant]
     Active Substance: ACETYLCYSTEINE
  7. ALBUTEROL SULFATE [Concomitant]
     Active Substance: ALBUTEROL SULFATE
  8. ALLOPURINOL [Concomitant]
     Active Substance: ALLOPURINOL
  9. AMOXICILLIN [Concomitant]
     Active Substance: AMOXICILLIN
  10. AZITHROMYCIN [Concomitant]
     Active Substance: AZITHROMYCIN
  11. AMIODARONE [Concomitant]
     Active Substance: AMIODARONE
  12. CEFDINIR [Concomitant]
     Active Substance: CEFDINIR
  13. COMBIVENT [Concomitant]
     Active Substance: ALBUTEROL SULFATE\IPRATROPIUM BROMIDE
  14. AZELASTINE HYDROCHLORIDE\FLUTICASONE PROPIONATE [Concomitant]
     Active Substance: AZELASTINE HYDROCHLORIDE\FLUTICASONE PROPIONATE
  15. DILTIAZEM [Concomitant]
     Active Substance: DILTIAZEM
  16. ELIQUIS [Concomitant]
     Active Substance: APIXABAN
  17. FAMOTIDINE [Concomitant]
     Active Substance: FAMOTIDINE
  18. FUROSEMIDE [Concomitant]
     Active Substance: FUROSEMIDE
  19. ESZOPICLONE [Concomitant]
     Active Substance: ESZOPICLONE
  20. HYDROCHLOROTHIAZIDE [Concomitant]
     Active Substance: HYDROCHLOROTHIAZIDE
  21. HYDROCODONE [Concomitant]
     Active Substance: HYDROCODONE
  22. IVERMECTIN [Concomitant]
     Active Substance: IVERMECTIN
  23. METOPROLOL SUCCINATE [Concomitant]
     Active Substance: METOPROLOL SUCCINATE
  24. METHOCARBAMOL [Concomitant]
     Active Substance: METHOCARBAMOL
  25. LORATADINE [Concomitant]
     Active Substance: LORATADINE
  26. METRONIDAZOLE [Concomitant]
     Active Substance: METRONIDAZOLE
  27. MONTELUKAST [Concomitant]
     Active Substance: MONTELUKAST SODIUM
  28. OXYCODONE [Concomitant]
     Active Substance: OXYCODONE
  29. POTASSIUM CHLORIDE [Concomitant]
     Active Substance: POTASSIUM CHLORIDE
  30. PREDNISONE [Concomitant]
     Active Substance: PREDNISONE
  31. SULFAMETHOXAZOLE [Concomitant]
     Active Substance: SULFAMETHOXAZOLE
  32. TRELEGY ELLIPTA [Concomitant]
     Active Substance: FLUTICASONE FUROATE\UMECLIDINIUM BROMIDE\VILANTEROL TRIFENATATE

REACTIONS (19)
  - Atrial fibrillation [Unknown]
  - Off label use [Unknown]
  - Cough [Unknown]
  - Chest discomfort [Unknown]
  - Asthma [Unknown]
  - Back pain [Unknown]
  - COVID-19 [Unknown]
  - Hunger [Unknown]
  - Weight decreased [Unknown]
  - Rhinorrhoea [Unknown]
  - Oedema peripheral [Unknown]
  - Nasal discharge discolouration [Unknown]
  - Dizziness [Unknown]
  - Blood pressure increased [Unknown]
  - Fatigue [Unknown]
  - Hypersomnia [Unknown]
  - Gastrooesophageal reflux disease [Unknown]
  - Obstructive sleep apnoea syndrome [Unknown]
  - Obesity [Unknown]

NARRATIVE: CASE EVENT DATE: 20230531
